FAERS Safety Report 6164832-4 (Version None)
Quarter: 2009Q2

REPORT INFORMATION
  Report Type: 
  Country: None (occurrence: None)
  Receive Date: 20090423
  Receipt Date: 20090415
  Transmission Date: 20091009
  Serious: Yes (Hospitalization, Other)
  Sender: FDA-Public Use
  Company Number: PHHY2009DE14220

PATIENT
  Age: 71 Year
  Sex: Female
  Weight: 66 kg

DRUGS (10)
  1. ZOMETA [Suspect]
     Indication: PLASMACYTOMA
     Dosage: 4 MG
     Route: 042
  2. REVLIMID [Suspect]
     Indication: MULTIPLE MYELOMA
     Dosage: 25 MG, QOD
     Route: 048
     Dates: start: 20080728
  3. DEXAMETHASONE 4MG TAB [Concomitant]
     Indication: MULTIPLE MYELOMA
     Dosage: 40 MG, QW
     Dates: start: 20080311, end: 20090318
  4. COTRIM [Concomitant]
     Dosage: 800 / 160 MG, QW3
  5. KLACID [Concomitant]
     Dosage: 1000 MG, BID
  6. FERRO ^SANOL^ [Concomitant]
     Dosage: 50 MG, QD
     Route: 048
  7. NOVALGIN [Concomitant]
     Dosage: 25 DRP, QID
     Route: 048
  8. CLEXANE [Concomitant]
     Dosage: 0.4 MG, QD
     Route: 058
  9. NEORECORMON [Concomitant]
     Dosage: 3000 IU, QW
  10. PANTOZOL [Concomitant]
     Dosage: 40 MG, PRN

REACTIONS (7)
  - BONE DISORDER [None]
  - DENTAL CARIES [None]
  - DENTAL OPERATION [None]
  - GENERAL PHYSICAL HEALTH DETERIORATION [None]
  - ORAL PAIN [None]
  - OSTEONECROSIS [None]
  - TOOTH EXTRACTION [None]
